FAERS Safety Report 19840465 (Version 4)
Quarter: 2022Q1

REPORT INFORMATION
  Report Type: Report from Study
  Country: US (occurrence: US)
  Receive Date: 20210916
  Receipt Date: 20220121
  Transmission Date: 20220423
  Serious: Yes (Other)
  Sender: FDA-Public Use
  Company Number: US-BIOVITRUM-2021US8231

PATIENT
  Sex: Male

DRUGS (2)
  1. KINERET [Suspect]
     Active Substance: ANAKINRA
     Indication: Product used for unknown indication
     Route: 058
  2. KINERET [Suspect]
     Active Substance: ANAKINRA
     Dates: start: 20180829

REACTIONS (3)
  - SARS-CoV-2 test positive [Recovering/Resolving]
  - Dementia [Unknown]
  - Pruritus [Unknown]
